FAERS Safety Report 7459531-2 (Version None)
Quarter: 2011Q2

REPORT INFORMATION
  Report Type: 
  Country: None (occurrence: None)
  Receive Date: 20110426
  Receipt Date: 20110412
  Transmission Date: 20111010
  Serious: Yes (Other)
  Sender: FDA-Public Use
  Company Number: JP-2011-10146

PATIENT
  Age: 74 Year
  Sex: Female
  Weight: 37 kg

DRUGS (9)
  1. ALDACTONE [Suspect]
     Dosage: 25 MG MILLIGRAM(S), QD, ORAL
     Route: 048
     Dates: start: 20101213, end: 20110124
  2. SAMSCA [Suspect]
     Indication: OEDEMA PERIPHERAL
     Dosage: 15 MG MILLIGRAM(S), QD, ORAL
     Route: 048
     Dates: start: 20110118, end: 20110123
  3. LASIX [Suspect]
     Indication: OEDEMA PERIPHERAL
     Dosage: 40 MG MILLIGRAM(S), QD, ORAL
     Route: 048
     Dates: start: 20101214, end: 20110123
  4. ASPIRIN [Concomitant]
  5. WARFARIN (WARFARIN POTASSIUM) TABLET [Concomitant]
  6. GASTER D (FAMOTIDINE) TABLET [Concomitant]
  7. ANZIEF (ALLOPURINOL) TABLET [Concomitant]
  8. THYRADIN S (LEVOTHYROXINE SODIUM) TABLET [Concomitant]
  9. CETAPRIL (ALACEPRIL) TABLET [Concomitant]

REACTIONS (5)
  - BEDRIDDEN [None]
  - ALTERED STATE OF CONSCIOUSNESS [None]
  - DEHYDRATION [None]
  - GENERAL PHYSICAL HEALTH DETERIORATION [None]
  - HYPERNATRAEMIA [None]
